FAERS Safety Report 5791285-8 (Version None)
Quarter: 2008Q2

REPORT INFORMATION
  Report Type: 
  Country: None (occurrence: None)
  Receive Date: 20080626
  Receipt Date: 20080229
  Transmission Date: 20081010
  Serious: No
  Sender: FDA-Public Use
  Company Number: A0712671A

PATIENT

DRUGS (3)
  1. ALLI [Suspect]
  2. OMEGA 3 [Concomitant]
  3. LIPITOR [Concomitant]

REACTIONS (3)
  - FAECES DISCOLOURED [None]
  - GASTROINTESTINAL DISORDER [None]
  - SKIN ODOUR ABNORMAL [None]
